FAERS Safety Report 8922865 (Version 2)
Quarter: 2013Q1

REPORT INFORMATION
  Report Type: Spontaneous
  Country: US (occurrence: US)
  Receive Date: 20121123
  Receipt Date: 20130204
  Transmission Date: 20140127
  Serious: Yes (Other)
  Sender: FDA-Public Use
  Company Number: US-JNJFOC-20121109195

PATIENT
  Sex: Male

DRUGS (3)
  1. REMICADE [Suspect]
     Indication: COLITIS ULCERATIVE
     Route: 042
     Dates: start: 201110
  2. MULTIVITAMINS [Concomitant]
     Route: 065
  3. IRON [Concomitant]
     Indication: ANAEMIA
     Route: 065

REACTIONS (4)
  - Tongue disorder [Not Recovered/Not Resolved]
  - Colitis ulcerative [Unknown]
  - Platelet count decreased [Unknown]
  - Anti-platelet antibody [Unknown]
